FAERS Safety Report 23899124 (Version 1)
Quarter: 2024Q2

REPORT INFORMATION
  Report Type: Spontaneous
  Country: GB (occurrence: GB)
  Receive Date: 20240526
  Receipt Date: 20240526
  Transmission Date: 20240716
  Serious: Yes (Disabling, Other)
  Sender: FDA-Public Use
  Company Number: None

PATIENT
  Age: 61 Year
  Sex: Female

DRUGS (1)
  1. MONTELUKAST [Suspect]
     Active Substance: MONTELUKAST SODIUM
     Indication: Hypersensitivity
     Route: 048
     Dates: start: 20240510, end: 20240514

REACTIONS (20)
  - Headache [Recovered/Resolved]
  - Ear pain [Recovered/Resolved]
  - Pain in extremity [Recovering/Resolving]
  - Nausea [Recovered/Resolved]
  - Fatigue [Not Recovered/Not Resolved]
  - Tearfulness [Not Recovered/Not Resolved]
  - Paraesthesia [Recovered/Resolved]
  - Brain fog [Not Recovered/Not Resolved]
  - Oedema peripheral [Recovered/Resolved]
  - Panic attack [Recovered/Resolved]
  - Palpitations [Recovered/Resolved]
  - Mood swings [Not Recovered/Not Resolved]
  - Diarrhoea [Recovered/Resolved]
  - Anxiety [Not Recovered/Not Resolved]
  - Depression [Recovering/Resolving]
  - Muscular weakness [Recovering/Resolving]
  - Dizziness [Recovered/Resolved]
  - Disorientation [Recovered/Resolved]
  - Hypoaesthesia [Recovered/Resolved]
  - Intellectual disability [Not Recovered/Not Resolved]

NARRATIVE: CASE EVENT DATE: 20240510
